FAERS Safety Report 7713588-X (Version None)
Quarter: 2011Q3

REPORT INFORMATION
  Report Type: 
  Country: None (occurrence: None)
  Receive Date: 20110826
  Receipt Date: 20110822
  Transmission Date: 20111222
  Serious: Yes (Hospitalization)
  Sender: FDA-Public Use
  Company Number: GB-PFIZER INC-2011195976

PATIENT
  Age: 74 Year
  Sex: Male

DRUGS (7)
  1. RAMIPRIL [Suspect]
     Indication: HYPERTENSION
     Dosage: UNK
     Dates: start: 20080311, end: 20080401
  2. CLOPIDOGREL [Concomitant]
  3. ZOCOR [Concomitant]
     Dosage: UNK
     Dates: start: 20071214
  4. ACETYLSALICYLIC ACID [Concomitant]
  5. ALISKIREN [Suspect]
     Indication: HYPERTENSION
     Dosage: UNK
     Route: 048
     Dates: start: 20080311, end: 20080411
  6. AMLODIPINE [Concomitant]
     Dosage: UNK
     Dates: start: 20080212
  7. SERC [Concomitant]
     Dosage: UNK
     Dates: start: 19970519

REACTIONS (1)
  - ACUTE MYOCARDIAL INFARCTION [None]
